FAERS Safety Report 13098196 (Version 1)
Quarter: 2017Q1

REPORT INFORMATION
  Report Type: Spontaneous
  Country: BR (occurrence: BR)
  Receive Date: 20170109
  Receipt Date: 20170109
  Transmission Date: 20170428
  Serious: Yes (Hospitalization)
  Sender: FDA-Public Use
  Company Number: BR-MYLANLABS-2016M1059002

PATIENT

DRUGS (1)
  1. PREDNISONE. [Suspect]
     Active Substance: PREDNISONE
     Indication: ACUTE GENERALISED EXANTHEMATOUS PUSTULOSIS
     Route: 048

REACTIONS (2)
  - Pustular psoriasis [Recovered/Resolved]
  - Withdrawal syndrome [Recovered/Resolved]
